FAERS Safety Report 10055816 (Version 2)
Quarter: 2014Q2

REPORT INFORMATION
  Report Type: Spontaneous
  Country: US (occurrence: None)
  Receive Date: 20140331
  Receipt Date: 20140417
  Transmission Date: 20141212
  Serious: Yes (Hospitalization)
  Sender: FDA-Public Use
  Company Number: UTC-045900

PATIENT
  Age: 19 Year
  Sex: Female
  Weight: 58.06 kg

DRUGS (5)
  1. REMODULIN [Suspect]
     Indication: COR PULMONALE CHRONIC
     Dosage: 269.28 UG/KG (0.187 UG/KG, 1 IN 1 MIN), INTRAVENOUS DRIP
     Route: 041
     Dates: start: 20070810
  2. REMODULIN [Suspect]
     Indication: PULMONARY ARTERIAL HYPERTENSION
     Dosage: 269.28 UG/KG (0.187 UG/KG, 1 IN 1 MIN), INTRAVENOUS DRIP
     Route: 041
     Dates: start: 20070810
  3. LETARIS (AMBRISENTAN) [Concomitant]
  4. ADCIRCA (TADALAFIL) [Concomitant]
  5. FLOLAN (EPOPROSTENOL) [Concomitant]

REACTIONS (6)
  - Infection [None]
  - Device related infection [None]
  - Staphylococcal infection [None]
  - Pulmonary hypertension [None]
  - Fluid overload [None]
  - Device related infection [None]
